FAERS Safety Report 8142547-0 (Version None)
Quarter: 2012Q1

REPORT INFORMATION
  Report Type: 
  Country: None (occurrence: None)
  Receive Date: 20120216
  Receipt Date: 20120202
  Transmission Date: 20120608
  Serious: Yes (Disabling)
  Sender: FDA-Public Use
  Company Number: GB-WATSON-2012-01967

PATIENT
  Age: 76 Year
  Sex: Male
  Weight: 89 kg

DRUGS (4)
  1. ASPIRIN [Concomitant]
     Indication: ANTICOAGULANT THERAPY
     Dosage: 75MG, UNKNOWN
     Route: 048
  2. BENDROFLUMETHIAZIDE [Concomitant]
     Indication: HYPERTENSION
     Dosage: 2.5MG, UNKNOWN
     Route: 048
  3. LOSARTAN POTASSIUM [Suspect]
     Indication: HYPERTENSION
     Dosage: 100MG, UNKNOWN
     Route: 048
     Dates: start: 20111014, end: 20111019
  4. PRAVASTATIN [Concomitant]
     Indication: HYPERCHOLESTEROLAEMIA
     Dosage: 20MG, UNKNOWN
     Route: 048

REACTIONS (3)
  - PAIN [None]
  - INFLUENZA LIKE ILLNESS [None]
  - URINARY TRACT INFECTION [None]
